FAERS Safety Report 19946584 (Version 1)
Quarter: 2021Q4

REPORT INFORMATION
  Report Type: Report from Study
  Country: EG (occurrence: EG)
  Receive Date: 20211012
  Receipt Date: 20211012
  Transmission Date: 20220303
  Serious: Yes (Other)
  Sender: FDA-Public Use
  Company Number: EG-NOVARTISPH-NVSC2021EG219363

PATIENT
  Age: 34 Year
  Sex: Male

DRUGS (6)
  1. COSENTYX [Suspect]
     Active Substance: SECUKINUMAB
     Indication: Psoriatic arthropathy
     Dosage: 150 MG, EVERY MONTH OR 1.5 MONTH AS PER HCP TREATMENT PLAN
     Route: 058
     Dates: start: 201812, end: 202001
  2. COSENTYX [Suspect]
     Active Substance: SECUKINUMAB
     Dosage: 150 MG, EVERY MONTH OR 1.5 MONTH AS PER HCP TREATMENT PLAN
     Route: 058
     Dates: start: 202004, end: 202103
  3. COSENTYX [Suspect]
     Active Substance: SECUKINUMAB
     Dosage: 150 MG, EVERY MONTH OR 1.5 MONTH AS PER HCP TREATMENT PLAN
     Route: 058
     Dates: start: 202105
  4. METHOTREXATE [Suspect]
     Active Substance: METHOTREXATE
     Indication: Product used for unknown indication
     Dosage: 0.6 (UNIT NOT REPORTED), QW
     Route: 058
  5. METHOTREXATE [Suspect]
     Active Substance: METHOTREXATE
     Dosage: 6 DF, QW
     Route: 058
  6. ALBUMIN HUMAN [Concomitant]
     Active Substance: ALBUMIN HUMAN
     Indication: Liver disorder
     Dosage: 2 DF, QD (MONTH TWO TABLETS DAILY)
     Route: 065
     Dates: start: 2012

REACTIONS (9)
  - Psoriatic arthropathy [Recovering/Resolving]
  - Coronavirus infection [Recovered/Resolved]
  - Fatigue [Recovered/Resolved]
  - C-reactive protein increased [Unknown]
  - Pain [Recovering/Resolving]
  - Liver function test abnormal [Unknown]
  - Arthralgia [Not Recovered/Not Resolved]
  - Quality of life decreased [Recovering/Resolving]
  - Product availability issue [Recovered/Resolved]

NARRATIVE: CASE EVENT DATE: 20200101
